FAERS Safety Report 18448605 (Version 1)
Quarter: 2020Q4

REPORT INFORMATION
  Report Type: Spontaneous
  Country: PL (occurrence: PL)
  Receive Date: 20201031
  Receipt Date: 20201031
  Transmission Date: 20210114
  Serious: Yes (Life-Threatening, Other)
  Sender: FDA-Public Use
  Company Number: PL-TEVA-2020-PL-1842701

PATIENT
  Age: 24 Year
  Sex: Female

DRUGS (27)
  1. LACOSAMIDE. [Suspect]
     Active Substance: LACOSAMIDE
     Indication: SEIZURE
  2. VIGABATRIN. [Suspect]
     Active Substance: VIGABATRIN
     Indication: EPILEPSY
     Dosage: THERAPY START DATE AND END DATE: ASKU
     Route: 065
  3. CARBAMAZEPINE. [Suspect]
     Active Substance: CARBAMAZEPINE
     Indication: PARTIAL SEIZURES
     Dosage: 1000 MILLIGRAM DAILY; THERAPY START DATE AND END DATE: ASKU
     Route: 065
  4. CARBAMAZEPINE. [Suspect]
     Active Substance: CARBAMAZEPINE
     Dosage: 3000 MILLIGRAM DAILY; THERAPY START DATE; THERAPY END DATE : ASKED BUT UNKNOWN
     Route: 065
  5. LACOSAMIDE. [Suspect]
     Active Substance: LACOSAMIDE
     Indication: PARTIAL SEIZURES
     Dosage: 400 MILLIGRAM DAILY; THERAPY START DATE : ASKU
     Route: 048
  6. TOPIRAMATE. [Suspect]
     Active Substance: TOPIRAMATE
     Indication: PARTIAL SEIZURES
  7. GABAPENTIN. [Suspect]
     Active Substance: GABAPENTIN
     Indication: EPILEPSY
  8. VALPROATE SODIUM. [Suspect]
     Active Substance: VALPROATE SODIUM
     Indication: PARTIAL SEIZURES
     Dosage: THERAPY START DATE : ASKU
     Route: 065
  9. PHENYTOIN. [Suspect]
     Active Substance: PHENYTOIN
     Indication: PARTIAL SEIZURES
     Dosage: THERAPY START DATE AND END DATE: ASKU
     Route: 065
  10. VALPROIC ACID. [Suspect]
     Active Substance: VALPROIC ACID
     Indication: EPILEPSY
     Dosage: THERAPY START DATE AND END DATE: ASKU
     Route: 065
  11. OXCARBAZEPINE. [Suspect]
     Active Substance: OXCARBAZEPINE
     Indication: EPILEPSY
  12. TOPIRAMATE. [Suspect]
     Active Substance: TOPIRAMATE
     Indication: EPILEPSY
  13. CARBAMAZEPINE. [Suspect]
     Active Substance: CARBAMAZEPINE
     Indication: EPILEPSY
     Dosage: 1400 MILLIGRAM DAILY; THERAPY START DATE; THERAPY END DATE : ASKED BUT UNKNOWN
     Route: 065
  14. GABAPENTIN. [Suspect]
     Active Substance: GABAPENTIN
     Indication: PARTIAL SEIZURES
     Dosage: THERAPY START DATE AND END DATE: ASKU
     Route: 065
  15. LEVETIRACETAM. [Suspect]
     Active Substance: LEVETIRACETAM
     Indication: SEIZURE
  16. LEVETIRACETAM. [Suspect]
     Active Substance: LEVETIRACETAM
     Indication: EPILEPSY
  17. LACOSAMIDE. [Suspect]
     Active Substance: LACOSAMIDE
     Indication: EPILEPSY
  18. OXCARBAZEPINE. [Suspect]
     Active Substance: OXCARBAZEPINE
     Indication: PARTIAL SEIZURES
     Dosage: THERAPY START DATE: ASKU
     Route: 065
  19. TOPIRAMATE. [Suspect]
     Active Substance: TOPIRAMATE
     Indication: SEIZURE
     Dosage: THERAPY START DATE AND END DATE: ASKU
     Route: 065
  20. CARBAMAZEPINE. [Suspect]
     Active Substance: CARBAMAZEPINE
     Indication: SEIZURE
     Dosage: 600 MILLIGRAM DAILY; THERAPY START DATE; THERAPY END DATE : ASKED BUT UNKNOWN
     Route: 065
  21. GABAPENTIN. [Suspect]
     Active Substance: GABAPENTIN
     Indication: SEIZURE
  22. LEVETIRACETAM. [Suspect]
     Active Substance: LEVETIRACETAM
     Indication: PARTIAL SEIZURES
     Dosage: 3000 MILLIGRAM DAILY; THERAPY START DATE : ASKU
     Route: 048
  23. LAMOTRIGINE. [Suspect]
     Active Substance: LAMOTRIGINE
     Indication: PARTIAL SEIZURES
     Dosage: THERAPY START DATE AND END DATE: ASKU
     Route: 065
  24. LAMOTRIGINE. [Suspect]
     Active Substance: LAMOTRIGINE
     Indication: EPILEPSY
  25. PHENYTOIN. [Suspect]
     Active Substance: PHENYTOIN
     Indication: EPILEPSY
  26. LAMOTRIGINE. [Suspect]
     Active Substance: LAMOTRIGINE
     Indication: SEIZURE
  27. TIAGABINE [Suspect]
     Active Substance: TIAGABINE
     Indication: PRODUCT USED FOR UNKNOWN INDICATION
     Dosage: THERAPY START DATE AND END DATE: ASKU
     Route: 065

REACTIONS (12)
  - Neurotoxicity [Recovered/Resolved]
  - Adverse reaction [Unknown]
  - Seizure [Recovered/Resolved]
  - Drug ineffective [Unknown]
  - Diplopia [Recovered/Resolved]
  - Maternal exposure during pregnancy [Unknown]
  - Therapeutic product effect decreased [Unknown]
  - Therapeutic product effect incomplete [Unknown]
  - Condition aggravated [Unknown]
  - Normal newborn [Unknown]
  - Epilepsy [Unknown]
  - Dizziness [Recovered/Resolved]
